FAERS Safety Report 9070463 (Version 3)
Quarter: 2013Q4

REPORT INFORMATION
  Report Type: Report from Study
  Country: CA (occurrence: CA)
  Receive Date: 20130215
  Receipt Date: 20131226
  Transmission Date: 20140711
  Serious: Yes (Hospitalization)
  Sender: FDA-Public Use
  Company Number: CA-JNJFOC-20130203037

PATIENT
  Age: 63 Year
  Sex: Male

DRUGS (3)
  1. SIMPONI [Suspect]
     Indication: RHEUMATOID ARTHRITIS
     Route: 058
     Dates: start: 20120214, end: 20130115
  2. PLAQUENIL [Concomitant]
     Route: 048
  3. MTX [Concomitant]
     Route: 048

REACTIONS (3)
  - Toe amputation [Recovering/Resolving]
  - Post procedural infection [Not Recovered/Not Resolved]
  - Gangrene [Not Recovered/Not Resolved]
